APPROVED DRUG PRODUCT: NITROSTAT
Active Ingredient: NITROGLYCERIN
Strength: 10MG/ML
Dosage Form/Route: INJECTABLE;INJECTION
Application: A070872 | Product #001
Applicant: PARKE DAVIS DIV WARNER LAMBERT CO
Approved: Jan 8, 1987 | RLD: No | RS: No | Type: DISCN